FAERS Safety Report 21612232 (Version 5)
Quarter: 2022Q4

REPORT INFORMATION
  Report Type: Spontaneous
  Country: US (occurrence: US)
  Receive Date: 20221118
  Receipt Date: 20221231
  Transmission Date: 20230113
  Serious: No
  Sender: FDA-Public Use
  Company Number: US-JNJFOC-20221121533

PATIENT
  Age: 29 Year
  Sex: Female

DRUGS (3)
  1. STELARA [Suspect]
     Active Substance: USTEKINUMAB
     Indication: Crohn^s disease
     Dosage: STRENGTH: 90.00 MG/ML
     Route: 058
     Dates: start: 201903
  2. STELARA [Suspect]
     Active Substance: USTEKINUMAB
  3. ORILISSA [Concomitant]
     Active Substance: ELAGOLIX SODIUM
     Indication: Endometriosis
     Dates: start: 202210

REACTIONS (5)
  - Needle issue [Unknown]
  - Injection site pain [Unknown]
  - Off label use [Unknown]
  - Rash erythematous [Unknown]
  - Product dose omission issue [Unknown]

NARRATIVE: CASE EVENT DATE: 20221104
